FAERS Safety Report 25005281 (Version 1)
Quarter: 2025Q1

REPORT INFORMATION
  Report Type: Spontaneous
  Country: NL (occurrence: NL)
  Receive Date: 20250224
  Receipt Date: 20250224
  Transmission Date: 20250409
  Serious: Yes (Hospitalization, Other)
  Sender: NOVITIUM PHARMA
  Company Number: NL-NOVITIUMPHARMA-2025NLNVP00425

PATIENT
  Sex: Female

DRUGS (1)
  1. LIDOCAINE HYDROCHLORIDE [Suspect]
     Active Substance: LIDOCAINE HYDROCHLORIDE
     Indication: Analgesic therapy
     Route: 008

REACTIONS (5)
  - Anaesthetic complication [Unknown]
  - Dysphagia [Unknown]
  - Respiratory failure [Unknown]
  - Hypotension [Unknown]
  - Maternal exposure during delivery [Unknown]
